FAERS Safety Report 16108622 (Version 1)
Quarter: 2019Q1

REPORT INFORMATION
  Report Type: Spontaneous
  Country: SE (occurrence: SE)
  Receive Date: 20190323
  Receipt Date: 20190323
  Transmission Date: 20190418
  Serious: Yes (Hospitalization)
  Sender: FDA-Public Use
  Company Number: SE-ACCORD-114298

PATIENT
  Age: 59 Year
  Sex: Male

DRUGS (18)
  1. PRIMPERAN [Concomitant]
     Active Substance: METOCLOPRAMIDE HYDROCHLORIDE
  2. DOLCONTIN [Concomitant]
     Active Substance: MORPHINE
  3. LAXIDO [Concomitant]
     Active Substance: POLYETHYLENE GLYCOL 3350\POTASSIUM CHLORIDE\SODIUM BICARBONATE\SODIUM CHLORIDE
  4. CILAXORAL [Concomitant]
     Active Substance: SODIUM PICOSULFATE
     Dosage: 7.5 MG / ML
  5. BETAPRED [Concomitant]
     Active Substance: BETAMETHASONE SODIUM PHOSPHATE
  6. ALVEDON [Concomitant]
     Active Substance: ACETAMINOPHEN
  7. METFORMIN [Concomitant]
     Active Substance: METFORMIN HYDROCHLORIDE
  8. LOPERAMIDE [Concomitant]
     Active Substance: LOPERAMIDE
  9. CREON [Concomitant]
     Active Substance: PANCRELIPASE AMYLASE\PANCRELIPASE LIPASE\PANCRELIPASE PROTEASE
  10. MORPHINE [Concomitant]
     Active Substance: MORPHINE
  11. INNOHEP [Concomitant]
     Active Substance: TINZAPARIN SODIUM
  12. PACLITAXEL/PACLITAXEL LIPOSOME [Suspect]
     Active Substance: PACLITAXEL
     Indication: PANCREATIC CARCINOMA
     Route: 042
     Dates: start: 20180302, end: 20181018
  13. ACETYLCYSTEINE. [Concomitant]
     Active Substance: ACETYLCYSTEINE
  14. TERBUTALINE [Concomitant]
     Active Substance: TERBUTALINE
  15. IBUPROFEN. [Concomitant]
     Active Substance: IBUPROFEN
  16. INSULATARD FLEXPEN [Concomitant]
     Active Substance: INSULIN HUMAN
  17. GEMCITABINE/GEMCITABINE HYDROCHLORIDE [Suspect]
     Active Substance: GEMCITABINE\GEMCITABINE HYDROCHLORIDE
     Indication: PANCREATIC CARCINOMA
     Route: 042
     Dates: start: 20180302, end: 20181018
  18. CANODERM [Concomitant]
     Active Substance: UREA

REACTIONS (1)
  - Haemolytic uraemic syndrome [Recovered/Resolved]

NARRATIVE: CASE EVENT DATE: 20181031
